FAERS Safety Report 13426002 (Version 1)
Quarter: 2017Q2

REPORT INFORMATION
  Report Type: Spontaneous
  Country: US (occurrence: US)
  Receive Date: 20170411
  Receipt Date: 20170411
  Transmission Date: 20170830
  Serious: No
  Sender: FDA-Public Use
  Company Number: US-JNJFOC-20170127145

PATIENT
  Sex: Female

DRUGS (5)
  1. IBRANCE [Suspect]
     Active Substance: PALBOCICLIB
     Indication: PAIN
     Route: 065
     Dates: start: 201509
  2. LETROZOLE. [Concomitant]
     Active Substance: LETROZOLE
     Indication: PAIN
     Route: 065
     Dates: end: 201509
  3. FENTANYL. [Suspect]
     Active Substance: FENTANYL
     Indication: PAIN
     Dosage: FOR 5 DAYS ONLY
     Route: 065
     Dates: start: 20160912
  4. LYRICA [Suspect]
     Active Substance: PREGABALIN
     Indication: PAIN
     Route: 065
  5. HYDROCODONE [Suspect]
     Active Substance: HYDROCODONE
     Indication: PAIN
     Dosage: 10-325 (3-4 TIMES DAILY)
     Route: 065
     Dates: start: 201509

REACTIONS (5)
  - Headache [Unknown]
  - Pain [Unknown]
  - Dysstasia [Unknown]
  - Dizziness [Unknown]
  - Asthenia [Unknown]
